FAERS Safety Report 9698867 (Version 1)
Quarter: 2013Q4

REPORT INFORMATION
  Report Type: Spontaneous
  Country: US (occurrence: US)
  Receive Date: 20131120
  Receipt Date: 20131120
  Transmission Date: 20140711
  Serious: No
  Sender: FDA-Public Use
  Company Number: US-TARO-2013P1001621

PATIENT
  Age: 64 Year
  Sex: Female
  Weight: 113.4 kg

DRUGS (2)
  1. TRIAMCINOLONE ACETONIDE [Suspect]
     Route: 061
     Dates: start: 20130123, end: 20130124
  2. ^A LOT^ OF UNSPECIFIED CONCOMITANT PRODUCTS [Concomitant]

REACTIONS (1)
  - Drug ineffective [Recovered/Resolved]
